FAERS Safety Report 9531820 (Version 1)
Quarter: 2013Q3

REPORT INFORMATION
  Report Type: Spontaneous
  Country: SE (occurrence: None)
  Receive Date: 20130916
  Receipt Date: 20130916
  Transmission Date: 20140515
  Serious: Yes (Hospitalization)
  Sender: FDA-Public Use
  Company Number: VAL_02710_2013

PATIENT
  Age: 76 Year
  Sex: Male
  Weight: 83.6 kg

DRUGS (8)
  1. METOPROLOL [Suspect]
     Indication: PRODUCT USED FOR UNKNOWN INDICATION
     Dosage: DF
  2. ALISKIREN VS PLACEBO (CODE NOT BROKEN) [Suspect]
     Indication: CARDIOVASCULAR DISORDER
     Route: 048
     Dates: start: 20080707, end: 20101023
  3. NITROGLYCERINE [Suspect]
     Indication: PRODUCT USED FOR UNKNOWN INDICATION
  4. ISRADIPINE [Suspect]
     Indication: PRODUCT USED FOR UNKNOWN INDICATION
  5. FUROSEMIDE [Suspect]
     Indication: HYPERTENSION
  6. DOXAZOSIN [Suspect]
     Indication: HYPERTENSION
  7. KATOPIL [Suspect]
     Indication: HYPERTENSION
  8. NUTRICEUTICAL [Concomitant]

REACTIONS (1)
  - Presyncope [None]
